FAERS Safety Report 8882684 (Version 1)
Quarter: 2012Q4

REPORT INFORMATION
  Report Type: 
  Country: US (occurrence: US)
  Receive Date: 20121102
  Receipt Date: 20121102
  Transmission Date: 20130627
  Serious: Yes (Death, Hospitalization)
  Sender: FDA-Public Use
  Company Number: PHEH2012US021333

PATIENT
  Age: 84 Year
  Sex: Female

DRUGS (18)
  1. RECLAST [Suspect]
     Route: 042
     Dates: start: 20111230
  2. DULCOLAX [Concomitant]
     Indication: CONSTIPATION
     Dosage: 10 mg, UNK
  3. FENTANYL [Concomitant]
     Dosage: 25 ug, UNK
  4. MORPHINE SULFATE [Concomitant]
  5. CORRECTOL [Concomitant]
     Indication: ANXIETY
     Dosage: 1 DF, UNK
     Route: 048
  6. CALTRATE WITH VITAMIN D [Concomitant]
  7. AMLODIPINE BESYLATE [Concomitant]
     Dosage: 1 DF, UNK
     Route: 048
  8. LISINOPRIL [Concomitant]
     Dosage: 1 DF, BID
     Route: 048
  9. ASPIRIN [Concomitant]
     Dosage: 1 DF, UNK
     Route: 048
  10. PLAVIX [Concomitant]
     Dosage: 1 DF, UNK
     Route: 048
  11. METOPROLOL SUCCINATE [Concomitant]
  12. SIMVASTATIN [Concomitant]
     Dosage: 1 DF, QHS
     Route: 048
  13. NORCO [Concomitant]
  14. DURAGESIC [Concomitant]
  15. CALCIUM 500+D [Concomitant]
     Dosage: 1 DF, BID
     Route: 048
  16. VITAMIN D2 [Concomitant]
     Dosage: 50000 IU, UNK
     Route: 048
  17. LORTAB [Concomitant]
     Dosage: 1 or 2 DF every 6 hours as needed
     Route: 048
  18. SENOKOT [Concomitant]
     Indication: CONSTIPATION
     Dosage: 2 DF, QID
     Route: 048

REACTIONS (17)
  - Intestinal ischaemia [Fatal]
  - Abdominal pain [Fatal]
  - Metabolic acidosis [Fatal]
  - Diarrhoea [Fatal]
  - Intestinal dilatation [Fatal]
  - Hypophagia [Fatal]
  - Nausea [Fatal]
  - Decreased appetite [Fatal]
  - Urinary tract infection bacterial [Recovered/Resolved]
  - Leukocytosis [Unknown]
  - General physical health deterioration [Unknown]
  - Weight decreased [Unknown]
  - Renal failure acute [Recovered/Resolved]
  - Back pain [Unknown]
  - Dehydration [Recovered/Resolved]
  - Fatigue [Unknown]
  - Asthenia [Unknown]
